FAERS Safety Report 11705652 (Version 11)
Quarter: 2016Q1

REPORT INFORMATION
  Report Type: Spontaneous
  Country: US (occurrence: US)
  Receive Date: 20151106
  Receipt Date: 20160325
  Transmission Date: 20160525
  Serious: Yes (Hospitalization, Disabling, Other)
  Sender: FDA-Public Use
  Company Number: US-PFIZER INC-2015374069

PATIENT
  Age: 38 Year
  Sex: Female

DRUGS (2)
  1. ADVIL PM [Suspect]
     Active Substance: DIPHENHYDRAMINE CITRATE\IBUPROFEN
     Dosage: UNK (ONE COURSE IN THE EVENING)
     Route: 048
     Dates: start: 20131102
  2. ADVIL PM [Suspect]
     Active Substance: DIPHENHYDRAMINE CITRATE\IBUPROFEN
     Dosage: UNK
     Route: 048
     Dates: start: 20131104

REACTIONS (9)
  - Ocular surface disease [Not Recovered/Not Resolved]
  - Toxic epidermal necrolysis [Unknown]
  - Scar [Not Recovered/Not Resolved]
  - Hand-foot-and-mouth disease [Unknown]
  - Eyelid disorder [Not Recovered/Not Resolved]
  - Visual impairment [Unknown]
  - Deformity [Not Recovered/Not Resolved]
  - Stevens-Johnson syndrome [Unknown]
  - Lung disorder [Unknown]

NARRATIVE: CASE EVENT DATE: 20131102
